FAERS Safety Report 7321740-0 (Version None)
Quarter: 2011Q1

REPORT INFORMATION
  Report Type: 
  Country: None (occurrence: None)
  Receive Date: 20110228
  Receipt Date: 20110222
  Transmission Date: 20110831
  Serious: Yes (Other)
  Sender: FDA-Public Use
  Company Number: CHPA2011US02978

PATIENT
  Age: 50 Year
  Sex: Male
  Weight: 83.9 kg

DRUGS (3)
  1. EXCEDRIN PM [Suspect]
     Indication: INSOMNIA
     Dosage: 2 DF, PRN
     Route: 048
     Dates: start: 20100201, end: 20110201
  2. EXCEDRIN PM [Suspect]
     Dosage: UNK, PRN
     Route: 048
  3. AMLODIPINE [Concomitant]
     Indication: HYPERTENSION
     Dosage: 10 MG, QD
     Route: 048
     Dates: start: 20100101

REACTIONS (1)
  - HYPERTENSION [None]
